FAERS Safety Report 6715953-6 (Version None)
Quarter: 2010Q2

REPORT INFORMATION
  Report Type: 
  Country: None (occurrence: None)
  Receive Date: 20100506
  Receipt Date: 20100506
  Transmission Date: 20101027
  Serious: Yes (Disabling)
  Sender: FDA-Public Use
  Company Number: None

PATIENT
  Sex: Female
  Weight: 63.05 kg

DRUGS (1)
  1. FOSAMAX [Suspect]
     Indication: OSTEOPOROSIS
     Dosage: 35MG 1 A WEEK
     Dates: start: 20050401, end: 20090427

REACTIONS (3)
  - BONE DISORDER [None]
  - GINGIVAL DISORDER [None]
  - JAW DISORDER [None]
